FAERS Safety Report 12987812 (Version 1)
Quarter: 2016Q4

REPORT INFORMATION
  Report Type: Spontaneous
  Country: US (occurrence: US)
  Receive Date: 20161130
  Receipt Date: 20161130
  Transmission Date: 20170207
  Serious: Yes (Hospitalization)
  Sender: FDA-Public Use
  Company Number: US-SCIEGEN PHARMACEUTICALS INC-2016SCILIT00599

PATIENT
  Age: 74 Year
  Sex: Female

DRUGS (1)
  1. OLMESARTAN MEDOXOMIL TABLETS 5 MG, 20 MG, 40 MG [Suspect]
     Active Substance: OLMESARTAN MEDOXOMIL
     Indication: HYPERTENSION
     Dosage: UNKNOWN (APPROXIMATELY FOR 2 YEARS)
     Route: 065

REACTIONS (5)
  - Metabolic acidosis [Recovered/Resolved]
  - Gastric mucosa erythema [Recovered/Resolved]
  - Malnutrition [Recovered/Resolved]
  - Coeliac disease [Recovered/Resolved]
  - Acute kidney injury [Recovered/Resolved]
